FAERS Safety Report 16146784 (Version 1)
Quarter: 2019Q2

REPORT INFORMATION
  Report Type: Spontaneous
  Country: US (occurrence: US)
  Receive Date: 20190402
  Receipt Date: 20190402
  Transmission Date: 20190711
  Serious: No
  Sender: FDA-Public Use
  Company Number: US-BAYER-2019-062337

PATIENT
  Age: 83 Year
  Sex: Female
  Weight: 67 kg

DRUGS (3)
  1. ARTHRITIS RELIEF [Concomitant]
     Active Substance: MENTHOL
  2. MIRALAX [Suspect]
     Active Substance: POLYETHYLENE GLYCOL 3350
     Indication: BOWEL MOVEMENT IRREGULARITY
     Dosage: 1 DF, QD
     Route: 048
     Dates: start: 2016
  3. MIRALAX [Suspect]
     Active Substance: POLYETHYLENE GLYCOL 3350
     Indication: BOWEL MOVEMENT IRREGULARITY
     Dosage: 14 UNK

REACTIONS (3)
  - Frequent bowel movements [Unknown]
  - Off label use [None]
  - Product use in unapproved indication [None]
